FAERS Safety Report 13817443 (Version 2)
Quarter: 2017Q4

REPORT INFORMATION
  Report Type: Report from Study
  Country: JP (occurrence: JP)
  Receive Date: 20170731
  Receipt Date: 20171019
  Transmission Date: 20180320
  Serious: Yes (Other)
  Sender: FDA-Public Use
  Company Number: JP-BEH-2017082386

PATIENT
  Age: 67 Year
  Sex: Male
  Weight: 62.5 kg

DRUGS (14)
  1. LANSOPRAZOLE. [Concomitant]
     Active Substance: LANSOPRAZOLE
     Route: 048
  2. FLIVAS [Concomitant]
     Active Substance: NAFTOPIDIL
     Route: 048
  3. CARBOCISTEINE [Concomitant]
     Active Substance: CARBOCYSTEINE
     Route: 048
  4. HIZENTRA [Suspect]
     Active Substance: HUMAN IMMUNOGLOBULIN G
     Indication: SECONDARY IMMUNODEFICIENCY
     Dosage: 20 ML, TOT
     Route: 058
     Dates: start: 20160525
  5. ISONARIF [Concomitant]
     Active Substance: ISONIAZID\RIFAMPIN
     Route: 048
  6. MAGNESIUM OXIDE. [Concomitant]
     Active Substance: MAGNESIUM OXIDE
     Route: 048
  7. EDIROL [Concomitant]
     Active Substance: ELDECALCITOL
     Route: 048
  8. PREDONINE [Concomitant]
     Active Substance: PREDNISOLONE
     Route: 048
  9. BETANIS [Concomitant]
     Active Substance: MIRABEGRON
     Route: 048
  10. MUCOSOLVAN [Concomitant]
     Active Substance: AMBROXOL HYDROCHLORIDE
     Route: 048
  11. BAKTAR [Concomitant]
     Active Substance: SULFAMETHOXAZOLE\TRIMETHOPRIM
     Route: 065
  12. PROGRAF [Concomitant]
     Active Substance: TACROLIMUS\TACROLIMUS ANHYDROUS
     Route: 065
  13. BAYASPIRIN [Concomitant]
     Active Substance: ASPIRIN
     Route: 048
  14. ENBREL [Concomitant]
     Active Substance: ETANERCEPT
     Route: 065

REACTIONS (2)
  - Chronic obstructive pulmonary disease [Recovering/Resolving]
  - Upper respiratory tract inflammation [Recovering/Resolving]

NARRATIVE: CASE EVENT DATE: 20161026
